FAERS Safety Report 7215783-5 (Version None)
Quarter: 2011Q1

REPORT INFORMATION
  Report Type: 
  Country: None (occurrence: None)
  Receive Date: 20110107
  Receipt Date: 20101231
  Transmission Date: 20110831
  Serious: Yes (Other)
  Sender: FDA-Public Use
  Company Number: CO-PFIZER INC-2011000365

PATIENT
  Age: 45 Year
  Sex: Male

DRUGS (3)
  1. XALATAN [Suspect]
     Indication: GLAUCOMA
     Dosage: 1 DROP IN EACH EYE
     Dates: start: 20000101
  2. ALPHAGAN [Concomitant]
     Indication: GLAUCOMA
     Dosage: 1 DROP, TWICE A DAY
  3. OPTIVE [Concomitant]
     Dosage: UNK

REACTIONS (2)
  - EYE IRRITATION [None]
  - DACRYOSTENOSIS ACQUIRED [None]
